FAERS Safety Report 7987867 (Version 3)
Quarter: 2012Q4

REPORT INFORMATION
  Report Type: Report from Study
  Country: IE (occurrence: IE)
  Receive Date: 20110608
  Receipt Date: 20120905
  Transmission Date: 20130627
  Serious: Yes (Other)
  Sender: FDA-Public Use
  Company Number: IE-ROCHE-780465

PATIENT
  Sex: Female

DRUGS (2)
  1. MIRCERA [Suspect]
     Indication: NEPHROGENIC ANAEMIA
     Dosage: FREQUENCY: FORTNIGHTLY
     Route: 058
  2. MIRCERA [Suspect]
     Dosage: FREQUENCY: FORTNIGHTLY
     Route: 058
     Dates: start: 20110518, end: 20110629

REACTIONS (2)
  - Drug ineffective [Unknown]
  - No adverse event [Unknown]
